FAERS Safety Report 23160183 (Version 2)
Quarter: 2023Q4

REPORT INFORMATION
  Report Type: Spontaneous
  Country: US (occurrence: US)
  Receive Date: 20231108
  Receipt Date: 20231115
  Transmission Date: 20240110
  Serious: No
  Sender: FDA-Public Use
  Company Number: US-Calliditas-2023CAL01393

PATIENT
  Age: 46 Year
  Sex: Female
  Weight: 82.5 kg

DRUGS (1)
  1. TARPEYO [Suspect]
     Active Substance: BUDESONIDE
     Indication: IgA nephropathy
     Dosage: 16 MG (4MG CAPSULES) ONCE DAILY
     Route: 048
     Dates: start: 20231006, end: 20231103

REACTIONS (11)
  - Malaise [Unknown]
  - Fatigue [Unknown]
  - Limb discomfort [Unknown]
  - Back pain [Unknown]
  - Pain in extremity [Unknown]
  - Pain in extremity [Unknown]
  - Nausea [Unknown]
  - Dizziness [Unknown]
  - Anxiety [Unknown]
  - Depression [Unknown]
  - Adverse reaction [Unknown]
